FAERS Safety Report 4939883-5 (Version None)
Quarter: 2006Q1

REPORT INFORMATION
  Report Type: 
  Country: None (occurrence: None)
  Receive Date: 20060310
  Receipt Date: 20051128
  Transmission Date: 20060701
  Serious: Yes (Death, Disabling, Other)
  Sender: FDA-Public Use
  Company Number: US-GLAXOSMITHKLINE-A0584327A

PATIENT
  Age: 86 Year
  Sex: Female
  Weight: 34.5 kg

DRUGS (6)
  1. REQUIP [Suspect]
     Indication: PARKINSON'S DISEASE
     Dosage: 12MG PER DAY
  2. FOSAMAX [Concomitant]
     Indication: OSTEOPOROSIS
     Dosage: 70MG WEEKLY
     Route: 048
  3. PREDNISONE [Concomitant]
     Dosage: 10MG TWICE PER DAY
  4. AZATHIOPRINE [Concomitant]
     Dosage: 5MG TWICE PER DAY
     Route: 048
  5. NORVASC [Concomitant]
     Dosage: 5MG TWICE PER DAY
     Route: 048
  6. ZOLOFT [Concomitant]
     Dosage: 25MG PER DAY
     Route: 048

REACTIONS (4)
  - ERYTHEMA [None]
  - GANGRENE [None]
  - SKIN IRRITATION [None]
  - VASCULITIS [None]
